FAERS Safety Report 20228071 (Version 1)
Quarter: 2021Q4

REPORT INFORMATION
  Report Type: Spontaneous
  Country: US (occurrence: None)
  Receive Date: 20211224
  Receipt Date: 20211224
  Transmission Date: 20220303
  Serious: Yes (Other)
  Sender: FDA-Public Use
  Company Number: 2021A882765

PATIENT
  Sex: Female
  Weight: 98.9 kg

DRUGS (1)
  1. TAGRISSO [Suspect]
     Active Substance: OSIMERTINIB
     Indication: Brain neoplasm malignant
     Route: 048

REACTIONS (2)
  - Drug hypersensitivity [Not Recovered/Not Resolved]
  - Skin mass [Not Recovered/Not Resolved]
